FAERS Safety Report 19603715 (Version 2)
Quarter: 2021Q4

REPORT INFORMATION
  Report Type: Spontaneous
  Country: HU (occurrence: HU)
  Receive Date: 20210723
  Receipt Date: 20211008
  Transmission Date: 20220303
  Serious: Yes (Death, Hospitalization, Other)
  Sender: FDA-Public Use
  Company Number: HU-CELGENE-HUN-20210607179

PATIENT
  Age: 55 Year
  Sex: Male

DRUGS (8)
  1. VELCADE [Suspect]
     Active Substance: BORTEZOMIB
     Indication: Plasma cell myeloma
     Dosage: UNK
     Route: 065
     Dates: start: 2020
  2. DEXAMETHASONE [Suspect]
     Active Substance: DEXAMETHASONE
     Indication: Plasma cell myeloma
     Dosage: UNK
     Route: 065
     Dates: start: 2020
  3. DARZALEX [Suspect]
     Active Substance: DARATUMUMAB
     Indication: Plasma cell myeloma
     Dosage: UNK
     Route: 065
     Dates: start: 2020
  4. POMALIDOMIDE [Suspect]
     Active Substance: POMALIDOMIDE
     Indication: Plasma cell myeloma
     Dosage: UNK
     Route: 048
     Dates: start: 202001
  5. METHOTREXATE [Concomitant]
     Active Substance: METHOTREXATE
     Indication: Neurological symptom
     Dosage: UNK
     Route: 065
     Dates: start: 2020
  6. METHOTREXATE [Concomitant]
     Active Substance: METHOTREXATE
     Indication: Plasma cell myeloma
  7. CYTARABINE [Concomitant]
     Active Substance: CYTARABINE
     Indication: Neurological symptom
     Dosage: UNK
     Route: 065
     Dates: start: 2020
  8. CYTARABINE [Concomitant]
     Active Substance: CYTARABINE
     Indication: Plasma cell myeloma

REACTIONS (4)
  - Pneumonia [Fatal]
  - Urosepsis [Unknown]
  - Sepsis [Unknown]
  - Mastoiditis [Unknown]

NARRATIVE: CASE EVENT DATE: 20200801
